FAERS Safety Report 7985543-6 (Version None)
Quarter: 2011Q4

REPORT INFORMATION
  Report Type: 
  Country: None (occurrence: None)
  Receive Date: 20111214
  Receipt Date: 20111205
  Transmission Date: 20120403
  Serious: Yes (Hospitalization)
  Sender: FDA-Public Use
  Company Number: 2011SP057016

PATIENT
  Age: 10 Year
  Sex: Female

DRUGS (3)
  1. DESLORATADINE [Suspect]
     Indication: RHINITIS ALLERGIC
     Dosage: PO
     Route: 048
     Dates: start: 20080101, end: 20111101
  2. SINGULAIR [Suspect]
     Indication: ASTHMA
     Dosage: 5 MG;QD;PO
     Route: 048
     Dates: start: 20090701, end: 20111101
  3. FLUTICASONE PROPIONATE/SALMETEROL [Suspect]
     Indication: ASTHMA
     Dosage: INH
     Route: 055
     Dates: start: 20080101, end: 20111101

REACTIONS (4)
  - VOMITING [None]
  - TACHYCARDIA [None]
  - CONDUCTION DISORDER [None]
  - CHEST PAIN [None]
